FAERS Safety Report 11135805 (Version 2)
Quarter: 2015Q2

REPORT INFORMATION
  Report Type: Report from Study
  Country: US (occurrence: US)
  Receive Date: 20150526
  Receipt Date: 20150526
  Transmission Date: 20150821
  Serious: Yes (Hospitalization, Other)
  Sender: FDA-Public Use
  Company Number: US-BAYER-2015-033193

PATIENT
  Age: 66 Year
  Sex: Male
  Weight: 85.71 kg

DRUGS (12)
  1. PLAVIX [Suspect]
     Active Substance: CLOPIDOGREL BISULFATE
     Dosage: 75 MG, QD
     Route: 048
  2. FOLIC ACID. [Concomitant]
     Active Substance: FOLIC ACID
     Dosage: 400 ?G, QD
     Route: 048
  3. FINASTERIDE. [Concomitant]
     Active Substance: FINASTERIDE
     Dosage: 5 MG, QD
     Route: 048
  4. CARVEDILOL. [Concomitant]
     Active Substance: CARVEDILOL
     Dosage: 0.5 DF, BID
     Route: 048
  5. BAYER LOW DOSE [Suspect]
     Active Substance: ASPIRIN
  6. BETASERON [Suspect]
     Active Substance: INTERFERON BETA-1B
     Indication: MULTIPLE SCLEROSIS
     Dosage: UNK
     Route: 058
     Dates: start: 20060719, end: 20061017
  7. BETASERON [Suspect]
     Active Substance: INTERFERON BETA-1B
     Indication: MULTIPLE SCLEROSIS
     Dosage: UNK
     Dates: start: 20061027, end: 20080421
  8. ATORVASTATIN CALCIUM. [Concomitant]
     Active Substance: ATORVASTATIN CALCIUM
     Dosage: 20 MG, QD
     Route: 048
  9. BETASERON [Suspect]
     Active Substance: INTERFERON BETA-1B
     Indication: MULTIPLE SCLEROSIS
     Dosage: 8 MIU, QOD
     Route: 058
     Dates: start: 20080430, end: 20150112
  10. WARFARIN SODIUM. [Suspect]
     Active Substance: WARFARIN SODIUM
     Dosage: 5 MG, QD
     Route: 048
  11. PRAMIPEXOLE DIHYDROCHLORIDE. [Concomitant]
     Active Substance: PRAMIPEXOLE DIHYDROCHLORIDE
     Dosage: 0.125 MG, QHS
     Route: 048
  12. AMIODARONE HCL [Concomitant]
     Active Substance: AMIODARONE HYDROCHLORIDE
     Dosage: 1/2 ON INJECTION NIGHT AND 1 PO EVERY OTHER NIGHT

REACTIONS (35)
  - Peroneal nerve palsy [None]
  - Dysphagia [None]
  - Peripheral swelling [None]
  - Pollakiuria [None]
  - Musculoskeletal stiffness [None]
  - Balance disorder [None]
  - Amnesia [None]
  - Gait spastic [None]
  - Injection site atrophy [Not Recovered/Not Resolved]
  - Aphasia [None]
  - Swelling [None]
  - Increased tendency to bruise [None]
  - Haemorrhagic diathesis [None]
  - Pain in extremity [None]
  - Labelled drug-drug interaction medication error [None]
  - Cognitive disorder [None]
  - Neuralgia [None]
  - Motor dysfunction [None]
  - Asthenia [None]
  - Hyperphagia [None]
  - Pain in extremity [Recovered/Resolved]
  - Wheezing [None]
  - Dyspepsia [None]
  - Cardiac disorder [Recovered/Resolved]
  - Neurogenic bladder [None]
  - Weight fluctuation [None]
  - Urinary hesitation [None]
  - Depression [None]
  - Chest pain [Recovered/Resolved]
  - Sensory loss [None]
  - Myocardial infarction [Recovered/Resolved]
  - Dyspnoea exertional [None]
  - Coordination abnormal [None]
  - Confusional state [None]
  - Temperature intolerance [None]

NARRATIVE: CASE EVENT DATE: 2012
